FAERS Safety Report 7658211-8 (Version None)
Quarter: 2011Q3

REPORT INFORMATION
  Report Type: 
  Country: None (occurrence: None)
  Receive Date: 20110804
  Receipt Date: 20110804
  Transmission Date: 20111222
  Serious: No
  Sender: FDA-Public Use
  Company Number: None

PATIENT
  Sex: Female
  Weight: 58.514 kg

DRUGS (2)
  1. PREVACID [Suspect]
     Indication: BARRETT'S OESOPHAGUS
     Dosage: PREVACID 30MG DAILY PO
     Route: 048
     Dates: start: 20100914, end: 20101012
  2. PROTONIX [Suspect]
     Indication: BARRETT'S OESOPHAGUS
     Dosage: PROTONIX 40MG DAILY PO
     Route: 048
     Dates: start: 20101012, end: 20101015

REACTIONS (6)
  - TREMOR [None]
  - HYPERHIDROSIS [None]
  - DIARRHOEA [None]
  - DRUG EFFECT DECREASED [None]
  - DRUG INTOLERANCE [None]
  - ASTHENIA [None]
